FAERS Safety Report 10911842 (Version 1)
Quarter: 2015Q1

REPORT INFORMATION
  Report Type: Spontaneous
  Country: IT (occurrence: None)
  Receive Date: 20150309
  Receipt Date: 20150309
  Transmission Date: 20150721
  Serious: Yes (Hospitalization)
  Sender: FDA-Public Use
  Company Number: 2770067

PATIENT
  Age: 80 Year
  Sex: Female

DRUGS (6)
  1. ROCEFIN [Suspect]
     Active Substance: CEFTRIAXONE SODIUM
     Indication: CHRONIC OBSTRUCTIVE PULMONARY DISEASE
     Dates: start: 20150213, end: 20150218
  2. NEXIUM [Concomitant]
     Active Substance: ESOMEPRAZOLE MAGNESIUM
  3. NEBIVOLOL [Concomitant]
     Active Substance: NEBIVOLOL
  4. EUTIROX [Concomitant]
     Active Substance: LEVOTHYROXINE SODIUM
  5. VANCOMYCIN HYDROCHLORIDE. [Suspect]
     Active Substance: VANCOMYCIN HYDROCHLORIDE
     Indication: CLOSTRIDIUM TEST POSITIVE
     Route: 048
     Dates: start: 20150217, end: 20150218
  6. COUMADIN [Suspect]
     Active Substance: WARFARIN SODIUM
     Indication: ATRIAL FIBRILLATION
     Route: 048
     Dates: start: 20100101, end: 20150218

REACTIONS (3)
  - International normalised ratio increased [None]
  - Hypocoagulable state [None]
  - Drug interaction [None]

NARRATIVE: CASE EVENT DATE: 20150218
